FAERS Safety Report 23331478 (Version 1)
Quarter: 2023Q4

REPORT INFORMATION
  Report Type: Spontaneous
  Country: US (occurrence: US)
  Receive Date: 20231222
  Receipt Date: 20231222
  Transmission Date: 20240110
  Serious: Yes (Hospitalization)
  Sender: FDA-Public Use
  Company Number: US-Calliditas-2023CAL01662

PATIENT
  Age: 62 Year
  Sex: Male
  Weight: 95.25 kg

DRUGS (2)
  1. TARPEYO [Suspect]
     Active Substance: BUDESONIDE
     Indication: IgA nephropathy
     Route: 048
     Dates: start: 20230524
  2. VALSARTAN [Concomitant]
     Active Substance: VALSARTAN

REACTIONS (1)
  - Renal cancer [Unknown]
